FAERS Safety Report 7142626-0 (Version None)
Quarter: 2010Q4

REPORT INFORMATION
  Report Type: 
  Country: None (occurrence: None)
  Receive Date: 20101207
  Receipt Date: 20101130
  Transmission Date: 20110411
  Serious: Yes (Other)
  Sender: FDA-Public Use
  Company Number: CHPA2010US18339

PATIENT
  Age: 53 Year
  Sex: Female
  Weight: 104.31 kg

DRUGS (2)
  1. MAALOX ANTACID/ANTIGAS MAX QDTABS ASST (NCH) [Suspect]
     Indication: DYSPEPSIA
     Dosage: 4 DF,  (1 TIME A DAY) QD
     Route: 048
     Dates: start: 20101130, end: 20101130
  2. MAALOX ANTACID/ANTIGAS MAX QDTABS ASST (NCH) [Suspect]
     Indication: GASTROOESOPHAGEAL REFLUX DISEASE
     Dosage: UNK, PRN (^STARTED 20 YEARS AGO; WHEN SYMPTOMS OCCUR, NOT DAILY^)
     Route: 048

REACTIONS (7)
  - BACK PAIN [None]
  - DIABETES MELLITUS [None]
  - HEPATITIS C [None]
  - INCORRECT DOSE ADMINISTERED [None]
  - OFF LABEL USE [None]
  - PAIN IN EXTREMITY [None]
  - PANCREATITIS [None]
